FAERS Safety Report 5604114-X (Version None)
Quarter: 2008Q1

REPORT INFORMATION
  Report Type: 
  Country: None (occurrence: None)
  Receive Date: 20080123
  Receipt Date: 20080123
  Transmission Date: 20080703
  Serious: Yes (Other)
  Sender: FDA-Public Use
  Company Number: None

PATIENT
  Age: 6 Year
  Sex: Male

DRUGS (2)
  1. ABILIFY [Suspect]
     Indication: ANGER
     Dosage: PO
     Route: 048
     Dates: start: 20050101, end: 20070101
  2. LAMICTAL [Suspect]
     Indication: ANGER
     Dosage: PO
     Route: 048
     Dates: start: 20050101, end: 20070101

REACTIONS (5)
  - AGGRESSION [None]
  - ANGER [None]
  - DECREASED APPETITE [None]
  - HOSTILITY [None]
  - INSOMNIA [None]
